FAERS Safety Report 19113814 (Version 1)
Quarter: 2021Q2

REPORT INFORMATION
  Report Type: Spontaneous
  Country: AU (occurrence: AU)
  Receive Date: 20210409
  Receipt Date: 20210409
  Transmission Date: 20210717
  Serious: Yes (Hospitalization, Other)
  Sender: FDA-Public Use
  Company Number: AU-CIPLA LTD.-2021AU02737

PATIENT

DRUGS (3)
  1. POSACONAZOLE [Concomitant]
     Active Substance: POSACONAZOLE
     Indication: PRODUCT USED FOR UNKNOWN INDICATION
     Dosage: UNK
     Route: 065
  2. AZACITIDINE. [Suspect]
     Active Substance: AZACITIDINE
     Indication: ACUTE MYELOID LEUKAEMIA
     Dosage: 75 MG/M2 DAILY (MONOTHERAPY AND COMBINATION)
     Route: 058
  3. VENETOCLAX. [Suspect]
     Active Substance: VENETOCLAX
     Indication: ACUTE MYELOID LEUKAEMIA
     Dosage: 100 MILLIGRAM, QD
     Route: 048

REACTIONS (6)
  - Febrile neutropenia [Unknown]
  - Pneumonia [Unknown]
  - Toxicity to various agents [Unknown]
  - Neutropenia [Unknown]
  - Thrombocytopenia [Unknown]
  - Neutropenic sepsis [Unknown]
